FAERS Safety Report 11428018 (Version 1)
Quarter: 2015Q3

REPORT INFORMATION
  Report Type: Spontaneous
  Country: FR (occurrence: FR)
  Receive Date: 20150828
  Receipt Date: 20150828
  Transmission Date: 20151125
  Serious: Yes (Hospitalization)
  Sender: FDA-Public Use
  Company Number: FR-ASTRAZENECA-2015SE82473

PATIENT
  Age: 12243 Day
  Sex: Female

DRUGS (9)
  1. TERCIAN [Suspect]
     Active Substance: CYAMEMAZINE
     Indication: SEDATION
     Route: 048
     Dates: start: 20150423, end: 20150430
  2. LEPTICUR [Concomitant]
     Active Substance: TROPATEPINE HYDROCHLORIDE
  3. XEROQUEL [Suspect]
     Active Substance: QUETIAPINE FUMARATE
     Route: 048
     Dates: start: 20150423, end: 20150430
  4. ATARAX [Concomitant]
     Active Substance: HYDROXYZINE\HYDROXYZINE HYDROCHLORIDE
     Route: 048
     Dates: start: 20150423, end: 20150505
  5. XEROQUEL [Suspect]
     Active Substance: QUETIAPINE FUMARATE
     Route: 048
     Dates: start: 20150409, end: 20150422
  6. VALIUM [Concomitant]
     Active Substance: DIAZEPAM
     Dosage: 30 DROPS FOUR TIMES PER DAY,
  7. ALPRAZOLAM. [Concomitant]
     Active Substance: ALPRAZOLAM
     Route: 048
     Dates: start: 20150423, end: 20150505
  8. DEPAMIDE [Concomitant]
     Active Substance: VALPROMIDE
     Route: 048
     Dates: start: 20150423, end: 20150513
  9. THERALENE [Concomitant]
     Active Substance: TRIMEPRAZINE
     Route: 048
     Dates: start: 20150423, end: 20150430

REACTIONS (4)
  - Blood creatine phosphokinase increased [Unknown]
  - Tremor [Unknown]
  - Hyperthermia [Unknown]
  - Neuroleptic malignant syndrome [Recovered/Resolved]

NARRATIVE: CASE EVENT DATE: 20150430
